FAERS Safety Report 4994345-4 (Version None)
Quarter: 2006Q1

REPORT INFORMATION
  Report Type: 
  Country: None (occurrence: None)
  Receive Date: 20060314
  Receipt Date: 20050927
  Transmission Date: 20060701
  Serious: Yes (Hospitalization, Other)
  Sender: FDA-Public Use
  Company Number: 200512545BCC

PATIENT
  Age: 28 Year
  Sex: Male
  Weight: 113.3993 kg

DRUGS (2)
  1. ALEVE (CAPLET) [Suspect]
     Indication: HEADACHE
     Dosage: 440 MG, ONCE, ORAL
     Route: 048
     Dates: start: 20050616
  2. ALEVE (CAPLET) [Suspect]
     Indication: SINUS HEADACHE
     Dosage: 440 MG, ONCE, ORAL
     Route: 048
     Dates: start: 20050616

REACTIONS (16)
  - ANAPHYLACTIC SHOCK [None]
  - ASTHENIA [None]
  - BLOOD PRESSURE ABNORMAL [None]
  - DIZZINESS [None]
  - DYSPNOEA [None]
  - FALL [None]
  - GENITAL PRURITUS MALE [None]
  - HEADACHE [None]
  - HYPERHIDROSIS [None]
  - NAUSEA [None]
  - OEDEMA PERIPHERAL [None]
  - PALLOR [None]
  - PRURITUS [None]
  - SCROTAL SWELLING [None]
  - SKIN DISORDER [None]
  - SWELLING [None]
